FAERS Safety Report 25739133 (Version 2)
Quarter: 2025Q3

REPORT INFORMATION
  Report Type: Spontaneous
  Country: EU (occurrence: EU)
  Receive Date: 20250829
  Receipt Date: 20250922
  Transmission Date: 20251021
  Serious: Yes (Other)
  Sender: JOHNSON AND JOHNSON
  Company Number: None

PATIENT
  Age: 66 Year
  Sex: Male

DRUGS (5)
  1. PALIPERIDONE PALMITATE [Suspect]
     Active Substance: PALIPERIDONE PALMITATE
     Indication: Product used for unknown indication
     Route: 030
     Dates: start: 2019, end: 20250116
  2. PALIPERIDONE PALMITATE [Suspect]
     Active Substance: PALIPERIDONE PALMITATE
  3. PALIPERIDONE PALMITATE [Suspect]
     Active Substance: PALIPERIDONE PALMITATE
  4. METFORMIN [Concomitant]
     Active Substance: METFORMIN HYDROCHLORIDE
     Indication: Product used for unknown indication
  5. litium [Concomitant]
     Indication: Product used for unknown indication

REACTIONS (43)
  - Constipation [Unknown]
  - Pyrexia [Unknown]
  - Nausea [Unknown]
  - Slow response to stimuli [Unknown]
  - Salivary hypersecretion [Unknown]
  - Irritability [Unknown]
  - Speech disorder [Unknown]
  - Nervousness [Unknown]
  - Micturition disorder [Unknown]
  - Reduced facial expression [Unknown]
  - Gastrointestinal motility disorder [Unknown]
  - Fall [Unknown]
  - Hyperhidrosis [Unknown]
  - Anorgasmia [Unknown]
  - Drooling [Unknown]
  - Orthostatic hypotension [Unknown]
  - Prostatitis [Unknown]
  - Balance disorder [Unknown]
  - Depressed level of consciousness [Unknown]
  - Fatigue [Unknown]
  - Posture abnormal [Unknown]
  - Musculoskeletal stiffness [Unknown]
  - Weight increased [Unknown]
  - Libido decreased [Unknown]
  - Gait disturbance [Unknown]
  - Taste disorder [Unknown]
  - Hypertension [Unknown]
  - Dizziness [Unknown]
  - Asthenia [Unknown]
  - Flatulence [Unknown]
  - Initial insomnia [Unknown]
  - Confusional state [Unknown]
  - Ejaculation disorder [Unknown]
  - Dizziness postural [Unknown]
  - Erectile dysfunction [Unknown]
  - Body temperature increased [Recovering/Resolving]
  - Euphoric mood [Unknown]
  - Sleep disorder [Recovering/Resolving]
  - Bipolar disorder [Unknown]
  - Depression [Unknown]
  - Mania [Unknown]
  - Diabetes mellitus [Recovering/Resolving]
  - Onychomycosis [Unknown]
